FAERS Safety Report 6370457-8 (Version None)
Quarter: 2009Q3

REPORT INFORMATION
  Report Type: 
  Country: None (occurrence: None)
  Receive Date: 20090923
  Receipt Date: 20090916
  Transmission Date: 20100115
  Serious: Yes (Other)
  Sender: FDA-Public Use
  Company Number: B0593314A

PATIENT
  Age: 49 Year
  Sex: Female

DRUGS (7)
  1. ALLI [Suspect]
     Dosage: 60MG THREE TIMES PER DAY
     Route: 065
     Dates: start: 20090803
  2. BRONCHORETARD [Concomitant]
  3. PREDNISON [Concomitant]
  4. BERODUAL [Concomitant]
  5. INUVAIR [Concomitant]
  6. SPIRIVA [Concomitant]
  7. IBUPROFEN [Concomitant]

REACTIONS (2)
  - HAEMATEMESIS [None]
  - NAUSEA [None]
